FAERS Safety Report 9943398 (Version 4)
Quarter: 2014Q2

REPORT INFORMATION
  Report Type: Spontaneous
  Country: FI (occurrence: FI)
  Receive Date: 20140303
  Receipt Date: 20140505
  Transmission Date: 20141212
  Serious: Yes (Other)
  Sender: FDA-Public Use
  Company Number: PHHY2014FI022500

PATIENT
  Age: 53 Year
  Sex: Female

DRUGS (16)
  1. ACLASTA [Suspect]
     Indication: OSTEOPOROSIS
     Dosage: 5 MG/100 ML
     Route: 042
  2. ACLASTA [Suspect]
     Dosage: 5 MG/100 ML
     Route: 042
     Dates: start: 20140121
  3. OMEPRAZOL [Concomitant]
     Indication: DYSPEPSIA
     Dosage: 40 MG, QD
     Route: 048
  4. OMEPRAZOL [Concomitant]
     Indication: ABDOMINAL DISCOMFORT
  5. SERTRALIN [Concomitant]
     Indication: DEPRESSION
     Dosage: 50 MG, QD
     Route: 048
  6. CARTEXAN [Concomitant]
     Indication: OSTEOARTHRITIS
     Dosage: 40 MG, QD
     Route: 048
  7. KETIPINOR [Concomitant]
     Indication: DEPRESSION
     Dosage: 25 MG, QD
     Route: 048
  8. KALCIPOS-D [Concomitant]
     Indication: OSTEOPOROSIS
     Dosage: 2 DF, QD (1000MG/ 800 IU) (CONC: 500 MG/400 IU)
     Route: 048
  9. VITAMIN D3 [Concomitant]
     Indication: OSTEOPOROSIS
     Dosage: 30 UG, QD
     Route: 048
  10. PANADOL [Concomitant]
     Indication: PAIN
     Dosage: 1G TO 3 G PER DAY
     Route: 048
  11. ARTELAC [Concomitant]
     Indication: MUCOSAL DRYNESS
     Dosage: UNK
  12. ARTELAC [Concomitant]
     Indication: RHINITIS
  13. ATROVENT [Concomitant]
     Indication: MUCOSAL DRYNESS
     Dosage: UNK
  14. ATROVENT [Concomitant]
     Indication: RHINITIS
  15. NASONEX [Concomitant]
     Indication: MUCOSAL DRYNESS
     Dosage: UNK
  16. NASONEX [Concomitant]
     Indication: RHINITIS

REACTIONS (5)
  - Infection [Not Recovered/Not Resolved]
  - Bone fistula [Not Recovered/Not Resolved]
  - Tooth fracture [Not Recovered/Not Resolved]
  - Tooth abscess [Unknown]
  - Periodontitis [Unknown]
